FAERS Safety Report 6094653-2 (Version None)
Quarter: 2009Q1

REPORT INFORMATION
  Report Type: 
  Country: None (occurrence: None)
  Receive Date: 20090224
  Receipt Date: 20090219
  Transmission Date: 20090719
  Serious: Yes (Life-Threatening, Hospitalization)
  Sender: FDA-Public Use
  Company Number: FR-GUERBET-20090040

PATIENT
  Age: 34 Year
  Sex: Female

DRUGS (1)
  1. HEXABRIX [Suspect]
     Indication: ARTHROGRAM
     Dosage: 1, 1, TOTAL INTRA-ARTICULAR
     Route: 014
     Dates: start: 20090218, end: 20090218

REACTIONS (2)
  - ABDOMINAL PAIN [None]
  - ANAPHYLACTIC SHOCK [None]
